APPROVED DRUG PRODUCT: CLONIDINE HYDROCHLORIDE
Active Ingredient: CLONIDINE HYDROCHLORIDE
Strength: 0.1MG
Dosage Form/Route: TABLET;ORAL
Application: A070317 | Product #002
Applicant: RISING PHARMA HOLDING INC
Approved: Jul 9, 1987 | RLD: No | RS: No | Type: DISCN